FAERS Safety Report 14355202 (Version 1)
Quarter: 2018Q1

REPORT INFORMATION
  Report Type: Spontaneous
  Country: US (occurrence: US)
  Receive Date: 20180104
  Receipt Date: 20180104
  Transmission Date: 20180509
  Serious: Yes (Other)
  Sender: FDA-Public Use
  Company Number: None

PATIENT
  Age: 54 Year
  Sex: Female
  Weight: 55.35 kg

DRUGS (3)
  1. IMIQUIMOD 5% [Suspect]
     Active Substance: IMIQUIMOD
     Indication: CHAPPED LIPS
     Dosage: ?          QUANTITY:1 CREAM;?
     Route: 061
     Dates: start: 20171225, end: 20171228
  2. IMIQUIMOD 5% [Suspect]
     Active Substance: IMIQUIMOD
     Indication: SUNBURN
     Dosage: ?          QUANTITY:1 CREAM;?
     Route: 061
     Dates: start: 20171225, end: 20171228
  3. SYNTHROID [Concomitant]
     Active Substance: LEVOTHYROXINE SODIUM

REACTIONS (17)
  - Toxicity to various agents [None]
  - Impaired driving ability [None]
  - Nausea [None]
  - Decreased appetite [None]
  - Back pain [None]
  - Abdominal pain upper [None]
  - Lip blister [None]
  - Hypophagia [None]
  - Tinnitus [None]
  - Headache [None]
  - Fatigue [None]
  - Abscess [None]
  - Pallor [None]
  - Chills [None]
  - Pyrexia [None]
  - Impaired work ability [None]
  - Movement disorder [None]

NARRATIVE: CASE EVENT DATE: 20180101
